FAERS Safety Report 12118706 (Version 3)
Quarter: 2016Q4

REPORT INFORMATION
  Report Type: Spontaneous
  Country: US (occurrence: US)
  Receive Date: 20160226
  Receipt Date: 20161103
  Transmission Date: 20170206
  Serious: No
  Sender: FDA-Public Use
  Company Number: US-PFIZER INC-2016098516

PATIENT
  Age: 74 Year
  Sex: Male
  Weight: 103.4 kg

DRUGS (3)
  1. SUTENT [Suspect]
     Active Substance: SUNITINIB MALATE
     Dosage: UNK
  2. SUTENT [Suspect]
     Active Substance: SUNITINIB MALATE
     Indication: RENAL CELL CARCINOMA
     Dosage: 37.5 MG, CYCLIC (DAILY 28 D OUT OF 42)
     Route: 048
     Dates: start: 20160118
  3. SUTENT [Suspect]
     Active Substance: SUNITINIB MALATE
     Dosage: 25 MG, CYCLIC (1D-21 D Q 28D)
     Dates: end: 20161018

REACTIONS (8)
  - Nausea [Unknown]
  - Oral pain [Unknown]
  - Blood pressure increased [Recovered/Resolved]
  - Dry mouth [Unknown]
  - Dry throat [Unknown]
  - Dry skin [Unknown]
  - Cyst [Unknown]
  - Fatigue [Unknown]
